FAERS Safety Report 10156336 (Version 1)
Quarter: 2014Q2

REPORT INFORMATION
  Report Type: Spontaneous
  Country: JP (occurrence: JP)
  Receive Date: 20140507
  Receipt Date: 20140507
  Transmission Date: 20141212
  Serious: Yes (Hospitalization)
  Sender: FDA-Public Use
  Company Number: JP-PFIZER INC-2014123257

PATIENT
  Age: 59 Year
  Sex: Male
  Weight: 58.6 kg

DRUGS (2)
  1. TAKEPRON OD [Suspect]
     Indication: POSTOPERATIVE CARE
     Dosage: 15 MG, 2X/DAY
     Route: 048
     Dates: start: 20140322
  2. ALDACTONE-A [Suspect]
     Indication: POSTOPERATIVE CARE
     Dosage: 25 MG, 1X/DAY
     Route: 048
     Dates: start: 20140322

REACTIONS (1)
  - Platelet count increased [Recovered/Resolved]
